FAERS Safety Report 7581571-3 (Version None)
Quarter: 2011Q2

REPORT INFORMATION
  Report Type: 
  Country: None (occurrence: None)
  Receive Date: 20110629
  Receipt Date: 20110623
  Transmission Date: 20111010
  Serious: Yes (Death, Hospitalization)
  Sender: FDA-Public Use
  Company Number: PHHY2011MX56019

PATIENT
  Sex: Female

DRUGS (1)
  1. DIOVAN HCT [Suspect]
     Indication: HYPERTENSION
     Dosage: 1 DF, (VALSARTAN 160MG AND HYDROCHLOROTHIAZIDE 25MG; 1 TABLET PER DAY)
     Route: 048
     Dates: start: 20110101

REACTIONS (3)
  - RESPIRATORY FAILURE [None]
  - ARRHYTHMIA [None]
  - MYOCARDIAL INFARCTION [None]
